FAERS Safety Report 8568029-X (Version None)
Quarter: 2012Q3

REPORT INFORMATION
  Report Type: 
  Country: None (occurrence: None)
  Receive Date: 20120803
  Receipt Date: 20111021
  Transmission Date: 20120928
  Serious: No
  Sender: FDA-Public Use
  Company Number: US-ABBOTT-11P-163-0867965-00

PATIENT
  Sex: Male
  Weight: 118.95 kg

DRUGS (12)
  1. LANTUS [Concomitant]
     Indication: DIABETES MELLITUS
  2. KLONOPIN [Concomitant]
     Indication: DEPRESSION
  3. LISINOPRIL [Concomitant]
     Indication: HYPERTENSION
  4. POTASSIUM [Concomitant]
     Indication: JOINT SWELLING
  5. NIASPAN [Suspect]
     Indication: HIGH DENSITY LIPOPROTEIN ABNORMAL
  6. SIMVASTATIN [Concomitant]
     Indication: BLOOD CHOLESTEROL INCREASED
  7. PAROXETINE [Concomitant]
     Indication: PRODUCT USED FOR UNKNOWN INDICATION
  8. NIASPAN [Suspect]
     Indication: LOW DENSITY LIPOPROTEIN ABNORMAL
     Dates: start: 20111018
  9. ASPIRIN [Concomitant]
     Indication: CARDIAC DISORDER
  10. NOVOLOG [Concomitant]
     Indication: DIABETES MELLITUS
  11. FUROSEMIDE [Concomitant]
     Indication: JOINT SWELLING
  12. COREG [Concomitant]
     Indication: CARDIAC DISORDER

REACTIONS (4)
  - NERVOUSNESS [None]
  - NAUSEA [None]
  - INSOMNIA [None]
  - COLD SWEAT [None]
